FAERS Safety Report 4543235-X (Version None)
Quarter: 2004Q4

REPORT INFORMATION
  Report Type: 
  Country: None (occurrence: None)
  Receive Date: 20041229
  Receipt Date: 20041215
  Transmission Date: 20050328
  Serious: Yes (Death)
  Sender: FDA-Public Use
  Company Number: CERZ-10741

PATIENT
  Age: 18 Year
  Sex: Male
  Weight: 46 kg

DRUGS (6)
  1. CEREZYME [Suspect]
     Indication: GAUCHER'S DISEASE
     Dosage: 120 U/KG Q2WKS IV
     Route: 042
     Dates: start: 19970101
  2. DEPAKENE [Concomitant]
  3. LEXOTAN [Concomitant]
  4. FRISIUM [Concomitant]
  5. CITALOPRAM HYDROBROMIDE [Concomitant]
  6. PHENOBARBITAL TAB [Concomitant]

REACTIONS (3)
  - PNEUMONIA [None]
  - PNEUMOPERITONEUM [None]
  - POST PROCEDURAL COMPLICATION [None]
